FAERS Safety Report 7408111-3 (Version None)
Quarter: 2011Q2

REPORT INFORMATION
  Report Type: 
  Country: None (occurrence: None)
  Receive Date: 20110412
  Receipt Date: 20110330
  Transmission Date: 20111010
  Serious: Yes (Other)
  Sender: FDA-Public Use
  Company Number: FR-JNJFOC-20110401819

PATIENT
  Age: 44 Year
  Sex: Female

DRUGS (8)
  1. GESTODENE AND ETHINYL ESTRADIOL [Concomitant]
     Route: 065
  2. LITHIUM [Concomitant]
     Route: 065
  3. TOPIRAMATE [Suspect]
     Route: 048
  4. TOPIRAMATE [Suspect]
     Indication: PRODUCT USED FOR UNKNOWN INDICATION
     Route: 048
  5. TOPIRAMATE [Suspect]
     Route: 048
  6. MANGANESE [Concomitant]
     Route: 065
  7. COBALT [Concomitant]
     Route: 065
  8. PROPRANOLOL [Concomitant]
     Route: 065

REACTIONS (2)
  - GRANULOMA ANNULARE [None]
  - SOCIAL AVOIDANT BEHAVIOUR [None]
